FAERS Safety Report 6183985-5 (Version None)
Quarter: 2009Q2

REPORT INFORMATION
  Report Type: 
  Country: None (occurrence: None)
  Receive Date: 20090506
  Receipt Date: 20090506
  Transmission Date: 20091009
  Serious: Yes (Hospitalization)
  Sender: FDA-Public Use
  Company Number: None

PATIENT
  Age: 59 Year
  Sex: Male
  Weight: 103.77 kg

DRUGS (2)
  1. INDOMETHACIN [Suspect]
     Dosage: 50 MG BID PO
     Route: 048
     Dates: start: 20090219, end: 20090319
  2. WARFARIN SODIUM [Suspect]
     Dosage: 5 MG HS PO
     Route: 048

REACTIONS (1)
  - HAEMATURIA [None]
